FAERS Safety Report 5588077-1 (Version None)
Quarter: 2008Q1

REPORT INFORMATION
  Report Type: 
  Country: None (occurrence: None)
  Receive Date: 20080111
  Receipt Date: 20080107
  Transmission Date: 20080703
  Serious: Yes (Death, Other)
  Sender: FDA-Public Use
  Company Number: US-BRISTOL-MYERS SQUIBB COMPANY-14034557

PATIENT

DRUGS (1)
  1. IXEMPRA [Suspect]

REACTIONS (2)
  - DEATH [None]
  - MUCOSAL INFLAMMATION [None]
